FAERS Safety Report 8115818 (Version 2)
Quarter: 2013Q4

REPORT INFORMATION
  Report Type: Not Available
  Country: SI (occurrence: SI)
  Receive Date: 20110831
  Receipt Date: 20131014
  Transmission Date: 20140711
  Serious: No
  Sender: FDA-Public Use
  Company Number: SI-CUBIST-2011S1000497

PATIENT
  Age: 60 Year
  Sex: Male

DRUGS (3)
  1. CUBICIN [Suspect]
     Indication: DIABETIC FOOT
     Route: 042
  2. CUBICIN [Suspect]
     Indication: STAPHYLOCOCCAL SEPSIS
     Route: 042
  3. VANCOMYCIN [Concomitant]
     Indication: DIABETIC FOOT
     Dosage: DOSE UNIT:U UNKNOWN
     Route: 042

REACTIONS (1)
  - No adverse event [None]
